FAERS Safety Report 14208427 (Version 3)
Quarter: 2018Q1

REPORT INFORMATION
  Report Type: Report from Study
  Country: US (occurrence: US)
  Receive Date: 20171121
  Receipt Date: 20180104
  Transmission Date: 20180508
  Serious: Yes (Hospitalization, Other)
  Sender: FDA-Public Use
  Company Number: US-GILEAD-2017-0305372

PATIENT
  Age: 54 Year
  Sex: Male
  Weight: 96.96 kg

DRUGS (10)
  1. SILDENAFIL CITRATE. [Concomitant]
     Active Substance: SILDENAFIL CITRATE
  2. FLUTICASONE. [Concomitant]
     Active Substance: FLUTICASONE
  3. PROAIR HFA [Concomitant]
     Active Substance: ALBUTEROL SULFATE
  4. CELEXA [Concomitant]
     Active Substance: CITALOPRAM HYDROBROMIDE
  5. ENTECAVIR. [Concomitant]
     Active Substance: ENTECAVIR
  6. FLOVENT [Concomitant]
     Active Substance: FLUTICASONE PROPIONATE
  7. LACTULOSE. [Concomitant]
     Active Substance: LACTULOSE
  8. AMBRISENTAN [Suspect]
     Active Substance: AMBRISENTAN
     Indication: PULMONARY ARTERIAL HYPERTENSION
     Dosage: 10 MG, QD
     Route: 065
     Dates: start: 20160728
  9. AMBRISENTAN [Suspect]
     Active Substance: AMBRISENTAN
     Dosage: 5 MG, QD
     Route: 048
     Dates: start: 20160728
  10. GABAPENTIN. [Concomitant]
     Active Substance: GABAPENTIN

REACTIONS (4)
  - Pneumonia [Unknown]
  - Pulmonary arterial hypertension [Unknown]
  - Dyspnoea exertional [Unknown]
  - Pharyngitis streptococcal [Recovered/Resolved]

NARRATIVE: CASE EVENT DATE: 20171211
